FAERS Safety Report 11758365 (Version 2)
Quarter: 2016Q1

REPORT INFORMATION
  Report Type: Spontaneous
  Country: US (occurrence: US)
  Receive Date: 20151120
  Receipt Date: 20160105
  Transmission Date: 20160525
  Serious: Yes (Death, Hospitalization)
  Sender: FDA-Public Use
  Company Number: US-PFIZER INC-2015393769

PATIENT
  Age: 87 Year
  Sex: Male
  Weight: 102.6 kg

DRUGS (1)
  1. CELEBREX [Suspect]
     Active Substance: CELECOXIB
     Indication: ARTHRITIS
     Dosage: 200 MG, UNK

REACTIONS (3)
  - Myocardial infarction [Fatal]
  - Gastric ulcer haemorrhage [Unknown]
  - Eructation [Unknown]

NARRATIVE: CASE EVENT DATE: 20150121
